FAERS Safety Report 17153060 (Version 1)
Quarter: 2019Q4

REPORT INFORMATION
  Report Type: Report from Study
  Country: US (occurrence: US)
  Receive Date: 20191213
  Receipt Date: 20191213
  Transmission Date: 20200122
  Serious: No
  Sender: FDA-Public Use
  Company Number: NVSC2019US028978

PATIENT
  Sex: Male

DRUGS (1)
  1. ENTRESTO [Suspect]
     Active Substance: SACUBITRIL\VALSARTAN
     Indication: PRODUCT USED FOR UNKNOWN INDICATION
     Dosage: 50 MG, BID (24MG SACUBITRIL /26MGVALSARTAN)
     Route: 048
     Dates: start: 20191022

REACTIONS (3)
  - Malaise [Unknown]
  - Asthenia [Unknown]
  - Dizziness [Unknown]
